FAERS Safety Report 5994598-X (Version None)
Quarter: 2008Q4

REPORT INFORMATION
  Report Type: 
  Country: None (occurrence: None)
  Receive Date: 20081209
  Receipt Date: 20081105
  Transmission Date: 20090506
  Serious: No
  Sender: FDA-Public Use
  Company Number: 002#1#2008-00629

PATIENT
  Age: 60 Year
  Sex: Male
  Weight: 131 kg

DRUGS (5)
  1. NEUPRO [Suspect]
     Indication: PARKINSON'S DISEASE
     Dosage: 10MG/24H,1 IN 1 D,TRANSDERMAL
     Route: 062
     Dates: end: 20080701
  2. SINEMET [Concomitant]
  3. COMTAN [Concomitant]
  4. ZOLOFT [Concomitant]
  5. HYDROCHLOROTHIAZIDE [Concomitant]

REACTIONS (1)
  - OVERDOSE [None]
